FAERS Safety Report 22016144 (Version 2)
Quarter: 2024Q1

REPORT INFORMATION
  Report Type: Spontaneous
  Country: US (occurrence: US)
  Receive Date: 20230221
  Receipt Date: 20240221
  Transmission Date: 20240409
  Serious: No
  Sender: FDA-Public Use
  Company Number: US-ELI_LILLY_AND_COMPANY-US202302009907

PATIENT
  Age: 53 Year
  Sex: Female

DRUGS (37)
  1. MOUNJARO [Suspect]
     Active Substance: TIRZEPATIDE
     Indication: Glucose tolerance impaired
     Dosage: 2.5 MG, UNKNOWN
     Route: 065
     Dates: start: 202210
  2. MOUNJARO [Suspect]
     Active Substance: TIRZEPATIDE
     Indication: Glucose tolerance impaired
     Dosage: 2.5 MG, UNKNOWN
     Route: 065
     Dates: start: 202210
  3. MOUNJARO [Suspect]
     Active Substance: TIRZEPATIDE
     Indication: Glucose tolerance impaired
     Dosage: 2.5 MG, UNKNOWN
     Route: 065
     Dates: start: 202210
  4. MOUNJARO [Suspect]
     Active Substance: TIRZEPATIDE
     Indication: Glucose tolerance impaired
     Dosage: 2.5 MG, UNKNOWN
     Route: 065
     Dates: start: 202210
  5. MOUNJARO [Suspect]
     Active Substance: TIRZEPATIDE
     Indication: Menopause
  6. MOUNJARO [Suspect]
     Active Substance: TIRZEPATIDE
     Indication: Menopause
  7. MOUNJARO [Suspect]
     Active Substance: TIRZEPATIDE
     Indication: Menopause
  8. MOUNJARO [Suspect]
     Active Substance: TIRZEPATIDE
     Indication: Menopause
  9. MOUNJARO [Suspect]
     Active Substance: TIRZEPATIDE
     Indication: Binge eating
  10. MOUNJARO [Suspect]
     Active Substance: TIRZEPATIDE
     Indication: Binge eating
  11. MOUNJARO [Suspect]
     Active Substance: TIRZEPATIDE
     Indication: Binge eating
  12. MOUNJARO [Suspect]
     Active Substance: TIRZEPATIDE
     Indication: Binge eating
  13. MOUNJARO [Suspect]
     Active Substance: TIRZEPATIDE
     Indication: Weight increased
  14. MOUNJARO [Suspect]
     Active Substance: TIRZEPATIDE
     Indication: Weight increased
  15. MOUNJARO [Suspect]
     Active Substance: TIRZEPATIDE
     Indication: Weight increased
  16. MOUNJARO [Suspect]
     Active Substance: TIRZEPATIDE
     Indication: Weight increased
  17. MOUNJARO [Suspect]
     Active Substance: TIRZEPATIDE
     Indication: Glucose tolerance impaired
     Dosage: 5 MG, UNKNOWN
     Route: 058
     Dates: start: 20230208
  18. MOUNJARO [Suspect]
     Active Substance: TIRZEPATIDE
     Indication: Glucose tolerance impaired
     Dosage: 5 MG, UNKNOWN
     Route: 058
     Dates: start: 20230208
  19. MOUNJARO [Suspect]
     Active Substance: TIRZEPATIDE
     Indication: Glucose tolerance impaired
     Dosage: 5 MG, UNKNOWN
     Route: 058
     Dates: start: 20230208
  20. MOUNJARO [Suspect]
     Active Substance: TIRZEPATIDE
     Indication: Glucose tolerance impaired
     Dosage: 5 MG, UNKNOWN
     Route: 058
     Dates: start: 20230208
  21. MOUNJARO [Suspect]
     Active Substance: TIRZEPATIDE
     Indication: Glucose tolerance impaired
     Dosage: 5 MG, UNKNOWN
     Route: 058
     Dates: start: 20230208
  22. MOUNJARO [Suspect]
     Active Substance: TIRZEPATIDE
     Indication: Menopause
  23. MOUNJARO [Suspect]
     Active Substance: TIRZEPATIDE
     Indication: Menopause
  24. MOUNJARO [Suspect]
     Active Substance: TIRZEPATIDE
     Indication: Menopause
  25. MOUNJARO [Suspect]
     Active Substance: TIRZEPATIDE
     Indication: Menopause
  26. MOUNJARO [Suspect]
     Active Substance: TIRZEPATIDE
     Indication: Menopause
  27. MOUNJARO [Suspect]
     Active Substance: TIRZEPATIDE
     Indication: Binge eating
  28. MOUNJARO [Suspect]
     Active Substance: TIRZEPATIDE
     Indication: Binge eating
  29. MOUNJARO [Suspect]
     Active Substance: TIRZEPATIDE
     Indication: Binge eating
  30. MOUNJARO [Suspect]
     Active Substance: TIRZEPATIDE
     Indication: Binge eating
  31. MOUNJARO [Suspect]
     Active Substance: TIRZEPATIDE
     Indication: Binge eating
  32. MOUNJARO [Suspect]
     Active Substance: TIRZEPATIDE
     Indication: Weight increased
  33. MOUNJARO [Suspect]
     Active Substance: TIRZEPATIDE
     Indication: Weight increased
  34. MOUNJARO [Suspect]
     Active Substance: TIRZEPATIDE
     Indication: Weight increased
  35. MOUNJARO [Suspect]
     Active Substance: TIRZEPATIDE
     Indication: Weight increased
  36. MOUNJARO [Suspect]
     Active Substance: TIRZEPATIDE
     Indication: Weight increased
  37. CHOLESTEROL [Concomitant]
     Active Substance: CHOLESTEROL
     Indication: Glucose tolerance impaired

REACTIONS (3)
  - Off label use [Unknown]
  - Decreased appetite [Unknown]
  - Nausea [Unknown]
